FAERS Safety Report 9954369 (Version 1)
Quarter: 2014Q1

REPORT INFORMATION
  Report Type: Report from Study
  Country: US (occurrence: US)
  Receive Date: 20140304
  Receipt Date: 20140304
  Transmission Date: 20141002
  Serious: Yes (Hospitalization, Other)
  Sender: FDA-Public Use
  Company Number: US-ABBVIE-14P-163-1205696-00

PATIENT
  Age: 64 Year
  Sex: Female
  Weight: 74 kg

DRUGS (11)
  1. HUMIRA [Suspect]
     Indication: CROHN^S DISEASE
     Dates: start: 201304, end: 201310
  2. COUMADIN [Concomitant]
     Indication: HEART VALVE REPLACEMENT
     Dates: end: 201310
  3. COUMADIN [Concomitant]
  4. METFORMIN [Concomitant]
     Indication: DIABETES MELLITUS
  5. GLYBURIDE [Concomitant]
     Indication: DIABETES MELLITUS
  6. ALLOPURINOL [Concomitant]
     Indication: GOUT
  7. PANTOPRAZOLE [Concomitant]
     Indication: PRODUCT USED FOR UNKNOWN INDICATION
  8. CITALOPRAM [Concomitant]
     Indication: PRODUCT USED FOR UNKNOWN INDICATION
  9. CRESTOR [Concomitant]
     Indication: PRODUCT USED FOR UNKNOWN INDICATION
  10. METOPROLOL [Concomitant]
     Indication: PRODUCT USED FOR UNKNOWN INDICATION
  11. MAGNESIUM [Concomitant]
     Indication: PRODUCT USED FOR UNKNOWN INDICATION

REACTIONS (4)
  - Haemorrhoids [Recovered/Resolved]
  - Rectal haemorrhage [Recovered/Resolved]
  - Haemoglobin decreased [Recovered/Resolved]
  - Haematocrit decreased [Unknown]
